FAERS Safety Report 8505796-5 (Version None)
Quarter: 2012Q3

REPORT INFORMATION
  Report Type: 
  Country: None (occurrence: None)
  Receive Date: 20120706
  Receipt Date: 20120706
  Transmission Date: 20120928
  Serious: Yes (Death)
  Sender: FDA-Public Use
  Company Number: None

PATIENT
  Age: 68 Year
  Sex: Female
  Weight: 64 kg

DRUGS (11)
  1. PANOBINOSTAT [Suspect]
     Indication: MULTIPLE MYELOMA
     Dosage: 15 MG, TIW, ORAL
     Route: 048
     Dates: start: 20120524, end: 20120621
  2. DEXAMETHASONE [Concomitant]
  3. ENOXAPARIN [Concomitant]
  4. SODIUM CHLORIDE [Concomitant]
  5. CARFILZOMIB [Suspect]
     Indication: MULTIPLE MYELOMA
     Dosage: 34 MG, IV
     Route: 042
     Dates: start: 20120524, end: 20120525
  6. CARFILZOMIB [Suspect]
     Dosage: 44 MG  IV
     Dates: start: 20120621
  7. ACYCLOVIR [Concomitant]
  8. CARFILZOMIB [Suspect]
     Dosage: 45 MG, IV
     Route: 042
     Dates: start: 20120531, end: 20120608
  9. MORPHINE [Concomitant]
  10. PREGABALIN [Concomitant]
  11. ALLOPURINOL [Concomitant]

REACTIONS (7)
  - CARDIAC ARREST [None]
  - PULSELESS ELECTRICAL ACTIVITY [None]
  - PNEUMONIA [None]
  - VENTRICULAR FIBRILLATION [None]
  - HYPOXIA [None]
  - ACUTE CORONARY SYNDROME [None]
  - PULMONARY EMBOLISM [None]
